FAERS Safety Report 7957252-0 (Version None)
Quarter: 2011Q4

REPORT INFORMATION
  Report Type: 
  Country: None (occurrence: None)
  Receive Date: 20111201
  Receipt Date: 20111117
  Transmission Date: 20120403
  Serious: Yes (Hospitalization)
  Sender: FDA-Public Use
  Company Number: TCI2011A05987

PATIENT
  Age: 86 Year
  Sex: Female

DRUGS (2)
  1. ACTOS [Suspect]
     Indication: DIABETES MELLITUS
     Dosage: 30 MG (15 MG, 2 - 1 D) PER ORAL
     Route: 048
  2. GLYBURIDE [Suspect]
     Dosage: 5 MG (2.5 MG, 2 IN 1 D) PER ORAL
     Route: 048

REACTIONS (11)
  - BLOOD CREATINE PHOSPHOKINASE INCREASED [None]
  - CEREBELLAR ATROPHY [None]
  - DECREASED APPETITE [None]
  - BLOOD PRESSURE SYSTOLIC INCREASED [None]
  - RESPIRATORY TRACT INFECTION [None]
  - DIARRHOEA [None]
  - PNEUMONIA [None]
  - HYPOGLYCAEMIC ENCEPHALOPATHY [None]
  - PYREXIA [None]
  - RESPIRATORY DISORDER [None]
  - BLOOD GLUCOSE INCREASED [None]
